FAERS Safety Report 4368574-7 (Version None)
Quarter: 2004Q2

REPORT INFORMATION
  Report Type: 
  Country: None (occurrence: None)
  Receive Date: 20040528
  Receipt Date: 20040514
  Transmission Date: 20050107
  Serious: Yes (Disabling)
  Sender: FDA-Public Use
  Company Number: 2004AP02055

PATIENT
  Age: 80 Year
  Sex: Female

DRUGS (7)
  1. IRESSA [Suspect]
     Indication: ADENOCARCINOMA
     Dosage: 250 MG DAILY PO
     Route: 048
     Dates: start: 20031126, end: 20031216
  2. IRESSA [Suspect]
     Indication: NON-SMALL CELL LUNG CANCER
     Dosage: 250 MG DAILY PO
     Route: 048
     Dates: start: 20031126, end: 20031216
  3. ADALAT [Concomitant]
  4. MEDICON [Concomitant]
  5. MUCOSTA [Concomitant]
  6. DIPYRIDAMOLE [Concomitant]
  7. ADONA [Concomitant]

REACTIONS (11)
  - ATRIAL FIBRILLATION [None]
  - BLOOD PRESSURE DECREASED [None]
  - CARDIAC FAILURE [None]
  - CARDIOMEGALY [None]
  - CONDITION AGGRAVATED [None]
  - OBSTRUCTIVE AIRWAYS DISORDER [None]
  - PERICARDIAL EFFUSION [None]
  - PERICARDIAL NEOPLASM [None]
  - RESPIRATORY DISORDER [None]
  - TACHYCARDIA [None]
  - VENTRICULAR TACHYCARDIA [None]
